FAERS Safety Report 7523983-X (Version None)
Quarter: 2011Q2

REPORT INFORMATION
  Report Type: 
  Country: None (occurrence: None)
  Receive Date: 20110603
  Receipt Date: 20110530
  Transmission Date: 20111010
  Serious: Yes (Hospitalization)
  Sender: FDA-Public Use
  Company Number: JP-CELGENEUS-087-21880-11031933

PATIENT
  Sex: Female

DRUGS (10)
  1. REVLIMID [Suspect]
     Indication: MULTIPLE MYELOMA
     Dosage: 15 MILLIGRAM
     Route: 048
     Dates: start: 20101220, end: 20110102
  2. ASPIRIN [Concomitant]
     Indication: PROPHYLAXIS
     Dosage: 100 MILLIGRAM
     Route: 048
     Dates: start: 20101220, end: 20110114
  3. ALLOPURINOL [Concomitant]
     Dosage: 100 MILLIGRAM
     Route: 048
     Dates: start: 20101220, end: 20110114
  4. DEXAMETHASONE [Suspect]
     Indication: MULTIPLE MYELOMA
     Dosage: 4 MILLIGRAM
     Route: 048
     Dates: start: 20101220, end: 20101223
  5. BONALON [Concomitant]
     Dosage: 35 MILLIGRAM
     Route: 048
     Dates: start: 20101220, end: 20110114
  6. KETOPROFEN [Concomitant]
     Dosage: 30 MILLIGRAM
     Route: 062
     Dates: start: 20110104, end: 20110114
  7. DEXAMETHASONE [Suspect]
     Dosage: 4 MILLIGRAM
     Route: 048
     Dates: start: 20101228, end: 20101231
  8. MUCOSTA [Concomitant]
     Indication: PROPHYLAXIS
     Dosage: 300 MILLIGRAM
     Route: 048
     Dates: start: 20101220, end: 20110114
  9. RABEPRAZOLE SODIUM [Concomitant]
     Indication: PROPHYLAXIS
     Dosage: 10 MILLIGRAM
     Route: 048
     Dates: start: 20101220, end: 20110114
  10. SULFAMETHOXAZOLE [Concomitant]
     Indication: PROPHYLAXIS
     Dosage: 480 MILLIGRAM
     Route: 048
     Dates: start: 20101220, end: 20110114

REACTIONS (2)
  - PYREXIA [None]
  - DELIRIUM [None]
